FAERS Safety Report 4493601-6 (Version None)
Quarter: 2004Q4

REPORT INFORMATION
  Report Type: 
  Country: None (occurrence: None)
  Receive Date: 20041103
  Receipt Date: 20041103
  Transmission Date: 20050328
  Serious: Yes (Hospitalization, Other)
  Sender: FDA-Public Use
  Company Number: None

PATIENT
  Sex: Female
  Weight: 61.2356 kg

DRUGS (2)
  1. VIOXX [Suspect]
     Indication: SPINAL COLUMN STENOSIS
     Dosage: 1 TABLET PER DAY ONOPHARING
     Route: 049
     Dates: start: 20020201, end: 20021001
  2. VIOXX [Suspect]
     Indication: SPINAL OSTEOARTHRITIS
     Dosage: 1 TABLET PER DAY ONOPHARING
     Route: 049
     Dates: start: 20020201, end: 20021001

REACTIONS (3)
  - ARRHYTHMIA [None]
  - CHEST PAIN [None]
  - VENTRICULAR EXTRASYSTOLES [None]
